FAERS Safety Report 11424109 (Version 2)
Quarter: 2015Q3

REPORT INFORMATION
  Report Type: Spontaneous
  Country: JP (occurrence: JP)
  Receive Date: 20150827
  Receipt Date: 20150917
  Transmission Date: 20151125
  Serious: Yes (Death)
  Sender: FDA-Public Use
  Company Number: JP-ASTRAZENECA-2013SE87674

PATIENT
  Age: 27470 Day
  Sex: Female
  Weight: 52 kg

DRUGS (10)
  1. HYPADIL [Concomitant]
     Active Substance: NIPRADILOL
     Indication: HYPERTENSION
     Route: 048
  2. PERDIPINE LA [Concomitant]
     Indication: HYPERTENSION
     Route: 048
  3. IRESSA [Suspect]
     Active Substance: GEFITINIB
     Indication: NON-SMALL CELL LUNG CANCER
     Route: 048
     Dates: start: 20110531, end: 201201
  4. MUCODYNE [Suspect]
     Active Substance: CARBOCYSTEINE
     Route: 048
     Dates: start: 20120127, end: 20121125
  5. DAONIL [Concomitant]
     Active Substance: GLYBURIDE
     Indication: DIABETES MELLITUS
     Route: 048
  6. LAC-B [Suspect]
     Active Substance: BIFIDOBACTERIUM SPP.
     Route: 048
     Dates: start: 20121106, end: 20121116
  7. IRESSA [Suspect]
     Active Substance: GEFITINIB
     Indication: NON-SMALL CELL LUNG CANCER
     Route: 048
     Dates: start: 201207, end: 20121125
  8. ERYTHROCIN [Suspect]
     Active Substance: ERYTHROMYCIN LACTOBIONATE
     Route: 048
     Dates: start: 20111117, end: 20121125
  9. IRESSA [Suspect]
     Active Substance: GEFITINIB
     Indication: NON-SMALL CELL LUNG CANCER
     Route: 048
     Dates: start: 201201, end: 201207
  10. DEPAS [Concomitant]
     Active Substance: ETIZOLAM
     Indication: INSOMNIA
     Route: 048

REACTIONS (3)
  - Interstitial lung disease [Fatal]
  - Dermatitis acneiform [Unknown]
  - Paronychia [Unknown]

NARRATIVE: CASE EVENT DATE: 20121119
